FAERS Safety Report 9477400 (Version 2)
Quarter: 2013Q3

REPORT INFORMATION
  Report Type: Spontaneous
  Country: US (occurrence: US)
  Receive Date: 20130826
  Receipt Date: 20130830
  Transmission Date: 20140515
  Serious: Yes (Hospitalization)
  Sender: FDA-Public Use
  Company Number: CHPA2013US013269

PATIENT
  Age: 61 Year
  Sex: Male

DRUGS (1)
  1. CONTROL PLP [Suspect]
     Indication: SMOKING CESSATION THERAPY
     Dosage: 1 DF, QD
     Route: 062
     Dates: start: 2013, end: 2013

REACTIONS (3)
  - Neoplasm malignant [Unknown]
  - Feeling abnormal [Unknown]
  - Treatment noncompliance [Unknown]
